FAERS Safety Report 7597683-4 (Version None)
Quarter: 2011Q3

REPORT INFORMATION
  Report Type: 
  Country: None (occurrence: None)
  Receive Date: 20110708
  Receipt Date: 20110615
  Transmission Date: 20111222
  Serious: Yes (Hospitalization)
  Sender: FDA-Public Use
  Company Number: US-GLAXOSMITHKLINE-A0815227A

PATIENT
  Age: 54 Year
  Sex: Male
  Weight: 152.7 kg

DRUGS (15)
  1. FLUTICASONE PROPIONATE [Concomitant]
  2. AVANDIA [Suspect]
     Indication: DIABETES MELLITUS
     Dosage: 4MG TWICE PER DAY
     Route: 048
     Dates: start: 20040101, end: 20070101
  3. GLUCOPHAGE [Concomitant]
  4. AZMACORT [Concomitant]
  5. INSULIN [Concomitant]
  6. ANDROGEL [Concomitant]
  7. WELLBUTRIN SR [Concomitant]
  8. LEXAPRO [Concomitant]
  9. LOTENSIN [Concomitant]
  10. LUNESTA [Concomitant]
  11. ZYPREXA [Concomitant]
  12. VYTORIN [Concomitant]
  13. LEVOTHYROXINE SODIUM [Concomitant]
  14. GLUCOTROL [Concomitant]
  15. TRICOR [Concomitant]

REACTIONS (3)
  - CARDIAC FAILURE CONGESTIVE [None]
  - CONGESTIVE CARDIOMYOPATHY [None]
  - CORONARY ARTERY DISEASE [None]
